FAERS Safety Report 8566790-1 (Version None)
Quarter: 2012Q3

REPORT INFORMATION
  Report Type: 
  Country: None (occurrence: None)
  Receive Date: 20120803
  Receipt Date: 20111101
  Transmission Date: 20120928
  Serious: No
  Sender: FDA-Public Use
  Company Number: US-ABBOTT-11P-163-0870039-00

PATIENT
  Sex: Male
  Weight: 99.88 kg

DRUGS (2)
  1. LIPITOR [Concomitant]
     Indication: PRODUCT USED FOR UNKNOWN INDICATION
  2. NIASPAN [Suspect]
     Indication: HIGH DENSITY LIPOPROTEIN DECREASED
     Dosage: AT BEDTIME
     Dates: start: 20111030

REACTIONS (9)
  - CHILLS [None]
  - ADVERSE DRUG REACTION [None]
  - PAIN [None]
  - NAUSEA [None]
  - DIZZINESS [None]
  - DIARRHOEA [None]
  - SWELLING [None]
  - LOSS OF CONSCIOUSNESS [None]
  - GASTRIC DISORDER [None]
